FAERS Safety Report 10345629 (Version 6)
Quarter: 2015Q2

REPORT INFORMATION
  Report Type: Report from Study
  Country: US (occurrence: US)
  Receive Date: 20140728
  Receipt Date: 20150424
  Transmission Date: 20150821
  Serious: Yes (Other)
  Sender: FDA-Public Use
  Company Number: US-SA-2014SA022155

PATIENT
  Age: 57 Year
  Sex: Female

DRUGS (1)
  1. AUBAGIO [Suspect]
     Active Substance: TERIFLUNOMIDE
     Indication: MULTIPLE SCLEROSIS
     Route: 048
     Dates: start: 20140303

REACTIONS (7)
  - Musculoskeletal stiffness [Unknown]
  - Tremor [Unknown]
  - Motor dysfunction [Unknown]
  - Headache [Recovered/Resolved]
  - Central nervous system lesion [Unknown]
  - Sensory loss [Unknown]
  - Unevaluable event [Unknown]

NARRATIVE: CASE EVENT DATE: 201402
